FAERS Safety Report 4681274-9 (Version None)
Quarter: 2005Q2

REPORT INFORMATION
  Report Type: 
  Country: None (occurrence: None)
  Receive Date: 20050602
  Receipt Date: 20050602
  Transmission Date: 20051028
  Serious: Yes (Life-Threatening, Hospitalization, Disabling)
  Sender: FDA-Public Use
  Company Number: None

PATIENT
  Age: 22 Year
  Sex: Female
  Weight: 100.6985 kg

DRUGS (1)
  1. BRETHINE [Suspect]
     Indication: PREMATURE LABOUR
     Dosage: 1 PILL A DAY ORAL
     Route: 048
     Dates: start: 19990709, end: 19990831

REACTIONS (7)
  - CARDIAC FAILURE CONGESTIVE [None]
  - CARDIOMYOPATHY [None]
  - DRUG EXPOSURE DURING PREGNANCY [None]
  - HAEMOPTYSIS [None]
  - INSOMNIA [None]
  - MALAISE [None]
  - PLEURAL EFFUSION [None]
